FAERS Safety Report 8294414-X (Version None)
Quarter: 2012Q2

REPORT INFORMATION
  Report Type: 
  Country: None (occurrence: None)
  Receive Date: 20120418
  Receipt Date: 20120222
  Transmission Date: 20120825
  Serious: Yes (Other)
  Sender: FDA-Public Use
  Company Number: PHEH2012US003234

PATIENT

DRUGS (3)
  1. CHEMOTHERAPEUTICS [Concomitant]
  2. RADIATION THERAPY [Concomitant]
  3. FEMARA [Suspect]
     Indication: BREAST CANCER STAGE III
     Dosage: 2.5 MG,
     Route: 048
     Dates: start: 20050101, end: 20100101

REACTIONS (5)
  - GAIT DISTURBANCE [None]
  - HYPOAESTHESIA [None]
  - LUMBAR RADICULOPATHY [None]
  - PERIPHERAL SENSORY NEUROPATHY [None]
  - NERVE INJURY [None]
